FAERS Safety Report 10162379 (Version 1)
Quarter: 2014Q2

REPORT INFORMATION
  Report Type: Spontaneous
  Country: US (occurrence: US)
  Receive Date: 20140509
  Receipt Date: 20140509
  Transmission Date: 20141212
  Serious: Yes (Other)
  Sender: FDA-Public Use
  Company Number: US-BAYER-2014-067246

PATIENT
  Age: 36 Year
  Sex: Female
  Weight: 113.83 kg

DRUGS (21)
  1. YAZ [Suspect]
  2. YASMIN [Suspect]
  3. OCELLA [Suspect]
  4. ORTHO TRICYCLEN [Concomitant]
     Dosage: UNK
     Dates: start: 2002
  5. TRI-SPRINTEC [Concomitant]
  6. PHENERGAN [Concomitant]
  7. IBUPROFEN [Concomitant]
  8. LEXAPRO [Concomitant]
     Dosage: 20 MG, DAILY
     Route: 048
  9. ABILIFY [Concomitant]
     Dosage: 15 MG, DAILY
     Route: 048
  10. LAMICTAL [Concomitant]
     Dosage: 100 MG, BID
     Route: 048
  11. AUGMENTIN [Concomitant]
     Dosage: 875 MG, UNK
  12. TRAMADOL [Concomitant]
     Dosage: 50 MG, EVERY 6 HRS
     Route: 048
  13. MECLIZINE [Concomitant]
     Dosage: 25 MG, TID
     Route: 048
  14. LUNESTA [Concomitant]
     Dosage: 2 MG, HS
     Route: 048
  15. VALIUM [Concomitant]
     Dosage: 5 MG, TID
     Route: 048
  16. AMOXIL [Concomitant]
     Dosage: 875 MG, BID
     Route: 048
  17. NAPROSYN [Concomitant]
     Dosage: 500 MG, BID
     Route: 048
  18. PERCOCET [Concomitant]
     Dosage: 5/325 EVERY 6 HRS
     Route: 048
  19. BACTRIM [Concomitant]
     Dosage: 800 MG, BID
     Route: 048
  20. LASIX [Concomitant]
     Dosage: DAILY
     Route: 048
  21. ASPIRIN [Concomitant]
     Dosage: 325 MG, DAILY

REACTIONS (2)
  - Thrombophlebitis superficial [None]
  - Pulmonary embolism [Recovered/Resolved]
